FAERS Safety Report 19665269 (Version 3)
Quarter: 2021Q4

REPORT INFORMATION
  Report Type: Spontaneous
  Country: US (occurrence: None)
  Receive Date: 20210805
  Receipt Date: 20211111
  Transmission Date: 20220303
  Serious: No
  Sender: FDA-Public Use
  Company Number: US-ROCHE-2825286

PATIENT
  Age: 76 Year
  Sex: Female
  Weight: 77.180 kg

DRUGS (3)
  1. GAVRETO [Suspect]
     Active Substance: PRALSETINIB
     Indication: Medullary thyroid cancer
     Dosage: TAKE 4 CAPSULES (400 MG TOTAL) BY MOUTH DAILY?TAKEN IN THE MORNING AT 7:00 AM
     Route: 048
     Dates: start: 20210426, end: 20210514
  2. LEVOTHYROXINE [Concomitant]
     Active Substance: LEVOTHYROXINE
     Dosage: TAKEN IN THE MORNING
     Route: 048
  3. GABAPENTIN [Concomitant]
     Active Substance: GABAPENTIN
     Indication: Arthritis
     Dosage: 1 TABLET IN THE MORNING AND 1 TABLET AT NIGHT

REACTIONS (6)
  - Blood pressure increased [Recovered/Resolved]
  - Constipation [Not Recovered/Not Resolved]
  - Auditory disorder [Not Recovered/Not Resolved]
  - Swollen tongue [Recovered/Resolved]
  - Cardiac disorder [Recovered/Resolved]
  - Chest discomfort [Recovered/Resolved]

NARRATIVE: CASE EVENT DATE: 20210427
